FAERS Safety Report 5882435-3 (Version None)
Quarter: 2008Q3

REPORT INFORMATION
  Report Type: 
  Country: None (occurrence: None)
  Receive Date: 20080913
  Receipt Date: 20080805
  Transmission Date: 20090109
  Serious: No
  Sender: FDA-Public Use
  Company Number: US-ABBOTT-08P-163-0468849-00

PATIENT
  Sex: Female
  Weight: 68.1 kg

DRUGS (2)
  1. HUMIRA [Suspect]
     Indication: RHEUMATOID ARTHRITIS
     Route: 058
     Dates: start: 20080620, end: 20080701
  2. HUMIRA [Suspect]
     Route: 058
     Dates: start: 20080801

REACTIONS (4)
  - ARTHRITIS [None]
  - OSTEOPOROSIS [None]
  - SKIN INFECTION [None]
  - THERMAL BURN [None]
